FAERS Safety Report 9388146 (Version 3)
Quarter: 2013Q3

REPORT INFORMATION
  Report Type: Spontaneous
  Country: US (occurrence: US)
  Receive Date: 20130708
  Receipt Date: 20130822
  Transmission Date: 20140515
  Serious: Yes (Death, Life-Threatening, Hospitalization, Other)
  Sender: FDA-Public Use
  Company Number: US-ELI_LILLY_AND_COMPANY-US201307000905

PATIENT
  Sex: Female
  Weight: 92.29 kg

DRUGS (14)
  1. ALIMTA [Suspect]
     Indication: NON-SMALL CELL LUNG CANCER
     Dosage: 1000 MG, CYCLICAL
     Route: 042
     Dates: start: 20130214
  2. ALIMTA [Suspect]
     Dosage: 985 MG, CYCLICAL
     Route: 042
  3. AVASTIN [Concomitant]
     Indication: NON-SMALL CELL LUNG CANCER
     Dosage: 15 MG/KG, UNK
  4. CARBOPLATIN [Concomitant]
     Indication: NON-SMALL CELL LUNG CANCER
  5. VITAMIN B12                        /00056201/ [Concomitant]
     Indication: SUPPLEMENTATION THERAPY
     Dosage: 1000 UG, UNK
     Route: 030
     Dates: start: 20130207
  6. FOLIC ACID [Concomitant]
     Indication: SUPPLEMENTATION THERAPY
     Dosage: 400 MG, UNK
     Route: 048
     Dates: start: 20130207
  7. XANAX [Concomitant]
  8. AFRIN                              /00070001/ [Concomitant]
  9. LOTRISONE [Concomitant]
  10. VERAPAMIL [Concomitant]
  11. LISINOPRIL [Concomitant]
     Dosage: UNK
  12. HYDROCHLOROTHIAZIDE [Concomitant]
  13. AMLODIPINE [Concomitant]
  14. SIMVASTATIN [Concomitant]

REACTIONS (22)
  - Hypovolaemic shock [Fatal]
  - Renal failure acute [Fatal]
  - Metabolic encephalopathy [Fatal]
  - Acute respiratory failure [Unknown]
  - Fall [Recovered/Resolved]
  - Mental status changes [Unknown]
  - Pancytopenia [Unknown]
  - Hypokalaemia [Unknown]
  - Haemorrhage [Unknown]
  - Acidosis [Unknown]
  - Activated partial thromboplastin time prolonged [Unknown]
  - International normalised ratio increased [Unknown]
  - Disseminated intravascular coagulation [Unknown]
  - Hypernatraemia [Unknown]
  - Blood bilirubin increased [Unknown]
  - Hepatic enzyme increased [Unknown]
  - Blood creatinine increased [Unknown]
  - Glomerular filtration rate decreased [Unknown]
  - Blood albumin decreased [Unknown]
  - Blood calcium decreased [Unknown]
  - Blood glucose increased [Unknown]
  - Off label use [Unknown]
